FAERS Safety Report 8382695-3 (Version None)
Quarter: 2012Q2

REPORT INFORMATION
  Report Type: 
  Country: None (occurrence: None)
  Receive Date: 20120524
  Receipt Date: 20120222
  Transmission Date: 20120825
  Serious: No
  Sender: FDA-Public Use
  Company Number: US-ALLERGAN-1202495US

PATIENT
  Age: 63 Year
  Sex: Female

DRUGS (1)
  1. LASTACAFT [Suspect]
     Indication: PRODUCT USED FOR UNKNOWN INDICATION
     Dosage: 2 GTT, PRN
     Route: 047
     Dates: start: 20110901, end: 20120212

REACTIONS (3)
  - EYE PRURITUS [None]
  - EYELIDS PRURITUS [None]
  - OCULAR HYPERAEMIA [None]
